FAERS Safety Report 25878507 (Version 1)
Quarter: 2025Q4

REPORT INFORMATION
  Report Type: Spontaneous
  Country: US (occurrence: None)
  Receive Date: 20251002
  Receipt Date: 20251002
  Transmission Date: 20260118
  Serious: Yes (Hospitalization, Other)
  Sender: FDA-CTU
  Company Number: None

PATIENT
  Age: 82 Year
  Sex: Female
  Weight: 58.97 kg

DRUGS (2)
  1. LISINOPRIL [Suspect]
     Active Substance: LISINOPRIL
     Dates: start: 202505
  2. Levothyroxin 125 mg [Concomitant]

REACTIONS (5)
  - Nausea [None]
  - Vertigo [None]
  - Ear discomfort [None]
  - Hypoacusis [None]
  - Therapy change [None]

NARRATIVE: CASE EVENT DATE: 20250501
